FAERS Safety Report 9153644 (Version 1)
Quarter: 2013Q1

REPORT INFORMATION
  Report Type: Spontaneous
  Country: DE (occurrence: None)
  Receive Date: 20130204
  Receipt Date: 20130204
  Transmission Date: 20140127
  Serious: Yes (Other)
  Sender: FDA-Public Use
  Company Number: AUR-APL-2013-00958

PATIENT
  Sex: Male
  Weight: 3.86 kg

DRUGS (2)
  1. SERTRALINE (SERTRALINE) (SERTRALINE) [Suspect]
     Indication: DEPRESSION
     Route: 064
     Dates: start: 20090811, end: 20100506
  2. FOLSAURE [Concomitant]

REACTIONS (5)
  - Maternal drugs affecting foetus [None]
  - Agitation neonatal [None]
  - Tremor [None]
  - Muscle twitching [None]
  - Exposure during breast feeding [None]
